FAERS Safety Report 12397568 (Version 1)
Quarter: 2016Q2

REPORT INFORMATION
  Report Type: Spontaneous
  Country: US (occurrence: US)
  Receive Date: 20160524
  Receipt Date: 20160524
  Transmission Date: 20160815
  Serious: No
  Sender: FDA-Public Use
  Company Number: US-GLAXOSMITHKLINE-US2016068556

PATIENT
  Age: 59 Year
  Sex: Female

DRUGS (4)
  1. NICODERM CQ [Suspect]
     Active Substance: NICOTINE
     Indication: SMOKING CESSATION THERAPY
     Dosage: 21 MG, UNK
  2. NICORETTE [Suspect]
     Active Substance: NICOTINE
     Indication: SMOKING CESSATION THERAPY
     Dosage: 2 MG, UNK
     Dates: start: 201605
  3. BENEFIBER [Suspect]
     Active Substance: STARCH, WHEAT
     Indication: GASTRIC DISORDER
     Dosage: UNK
  4. BENEFIBER [Suspect]
     Active Substance: STARCH, WHEAT
     Indication: FLATULENCE

REACTIONS (12)
  - Abnormal dreams [Recovered/Resolved]
  - Therapeutic response unexpected [Unknown]
  - Abdominal distension [Unknown]
  - Constipation [Not Recovered/Not Resolved]
  - Flatulence [Recovered/Resolved]
  - Nausea [Not Recovered/Not Resolved]
  - Abdominal discomfort [Not Recovered/Not Resolved]
  - Drug ineffective for unapproved indication [Unknown]
  - Hyperchlorhydria [Not Recovered/Not Resolved]
  - Heart rate increased [Recovered/Resolved]
  - Decreased appetite [Not Recovered/Not Resolved]
  - Eructation [Not Recovered/Not Resolved]
